FAERS Safety Report 24097994 (Version 2)
Quarter: 2024Q3

REPORT INFORMATION
  Report Type: Report from Study
  Country: TW (occurrence: TW)
  Receive Date: 20240716
  Receipt Date: 20240802
  Transmission Date: 20241017
  Serious: Yes (Other)
  Sender: CSL BEHRING
  Company Number: TW-BEH-2024175041

PATIENT

DRUGS (7)
  1. HUMAN IMMUNOGLOBULIN G [Suspect]
     Active Substance: HUMAN IMMUNOGLOBULIN G
     Route: 064
  2. ASPIRIN [Suspect]
     Active Substance: ASPIRIN
  3. HYDROXYCHLOROQUINE [Suspect]
     Active Substance: HYDROXYCHLOROQUINE
  4. PREDNISOLONE [Suspect]
     Active Substance: PREDNISOLONE
  5. AZATHIOPRINE [Suspect]
     Active Substance: AZATHIOPRINE
  6. BELIMUMAB [Suspect]
     Active Substance: BELIMUMAB
  7. HEPARIN [Suspect]
     Active Substance: HEPARIN SODIUM

REACTIONS (3)
  - Neonatal respiratory distress [Unknown]
  - Premature baby [Unknown]
  - Foetal exposure during pregnancy [Unknown]
